FAERS Safety Report 16424322 (Version 2)
Quarter: 2019Q3

REPORT INFORMATION
  Report Type: Spontaneous
  Country: ES (occurrence: ES)
  Receive Date: 20190613
  Receipt Date: 20190711
  Transmission Date: 20191004
  Serious: Yes (Life-Threatening, Hospitalization, Other)
  Sender: FDA-Public Use
  Company Number: ES-AMGEN-ESPSP2019092958

PATIENT
  Age: 82 Year
  Sex: Female
  Weight: 75 kg

DRUGS (3)
  1. ENTRESTO [Interacting]
     Active Substance: SACUBITRIL\VALSARTAN
     Indication: CARDIAC FAILURE
     Dosage: 1 DOSAGE FORM, QD
     Route: 048
     Dates: start: 20190304
  2. IVABRADINE [Suspect]
     Active Substance: IVABRADINE
     Indication: ANGINA PECTORIS
     Dosage: 7.5 MG, BID
     Route: 048
     Dates: start: 20190122, end: 20190513
  3. CINITAPRIDE. [Interacting]
     Active Substance: CINITAPRIDE
     Indication: DYSPEPSIA
     Dosage: 1 MILLIGRAM, TID
     Route: 048
     Dates: start: 20190122, end: 20190513

REACTIONS (3)
  - Cardiac arrest [Recovered/Resolved]
  - Ventricular tachycardia [Recovered/Resolved]
  - Electrocardiogram QT prolonged [Unknown]

NARRATIVE: CASE EVENT DATE: 20190513
